FAERS Safety Report 4551894-0 (Version None)
Quarter: 2004Q4

REPORT INFORMATION
  Report Type: 
  Country: None (occurrence: None)
  Receive Date: 20041217
  Receipt Date: 20040812
  Transmission Date: 20050328
  Serious: No
  Sender: FDA-Public Use
  Company Number: 2004-BP-06835BP(0)

PATIENT
  Age: 70 Year
  Sex: Female

DRUGS (5)
  1. SPIRIVA [Suspect]
     Indication: CHRONIC OBSTRUCTIVE AIRWAYS DISEASE
     Dosage: 18 MCG (18 MCG), IH
     Route: 055
     Dates: start: 20040810
  2. ALBUTEROL [Concomitant]
  3. ALBUTEROL SOLUTION (SALBUTAMOL) [Concomitant]
  4. ATROVENT SOLUTION (IPRATROPIUM BROMIDE) [Concomitant]
  5. ACCLAID [Concomitant]

REACTIONS (4)
  - CHEST DISCOMFORT [None]
  - DYSPNOEA [None]
  - SPUTUM RETENTION [None]
  - WHEEZING [None]
